FAERS Safety Report 4663434-6 (Version None)
Quarter: 2005Q2

REPORT INFORMATION
  Report Type: 
  Country: None (occurrence: None)
  Receive Date: 20050517
  Receipt Date: 20050215
  Transmission Date: 20051028
  Serious: Yes (Hospitalization)
  Sender: FDA-Public Use
  Company Number: 200511243US

PATIENT
  Age: 58 Year
  Sex: Male
  Weight: 80 kg

DRUGS (4)
  1. LOVENOX [Suspect]
     Dates: start: 20050107, end: 20050111
  2. COUMADIN [Concomitant]
     Route: 048
     Dates: end: 20050105
  3. CEFOTETAN [Concomitant]
     Dosage: DOSE: UNK
  4. HEPARIN [Concomitant]
     Dosage: DOSE: 600-700 U/HR
     Dates: start: 20050117

REACTIONS (16)
  - ABDOMINAL ABSCESS [None]
  - ABDOMINAL INFECTION [None]
  - ANASTOMOTIC LEAK [None]
  - BLOOD PRESSURE DECREASED [None]
  - DIZZINESS [None]
  - GASTROINTESTINAL DISORDER [None]
  - HAEMATOCRIT DECREASED [None]
  - HAEMOGLOBIN DECREASED [None]
  - HEPATOCELLULAR DAMAGE [None]
  - ILEUS [None]
  - INTESTINAL DILATATION [None]
  - INTESTINAL FUNCTIONAL DISORDER [None]
  - INTRA-ABDOMINAL HAEMORRHAGE [None]
  - MALAISE [None]
  - PALLOR [None]
  - PERITONEAL HAEMORRHAGE [None]
